FAERS Safety Report 15248272 (Version 1)
Quarter: 2018Q3

REPORT INFORMATION
  Report Type: Spontaneous
  Country: US (occurrence: US)
  Receive Date: 20180807
  Receipt Date: 20180807
  Transmission Date: 20181010
  Serious: No
  Sender: FDA-Public Use
  Company Number: US-CIPLA LTD.-2017US30951

PATIENT

DRUGS (3)
  1. AVAPRO [Concomitant]
     Active Substance: IRBESARTAN
     Indication: HYPERTENSION
     Dosage: 150 MG, QD
     Route: 065
     Dates: start: 201709
  2. MELOXICAM. [Suspect]
     Active Substance: MELOXICAM
     Dosage: 7.5 MG, QD
     Route: 048
     Dates: start: 201710, end: 201712
  3. MELOXICAM. [Suspect]
     Active Substance: MELOXICAM
     Indication: INFLAMMATION
     Dosage: 15 MG, QD
     Route: 065
     Dates: start: 20170901

REACTIONS (3)
  - Blood pressure increased [Recovered/Resolved]
  - Incorrect dose administered [Unknown]
  - Blood sodium increased [Recovered/Resolved]

NARRATIVE: CASE EVENT DATE: 201709
